FAERS Safety Report 8387638 (Version 2)
Quarter: 2013Q3

REPORT INFORMATION
  Report Type: Spontaneous
  Country: US (occurrence: US)
  Receive Date: 20120202
  Receipt Date: 20130820
  Transmission Date: 20140515
  Serious: Yes (Other)
  Sender: FDA-Public Use
  Company Number: US-ASTRAZENECA-2012SE05471

PATIENT
  Age: 56 Year
  Sex: Female

DRUGS (2)
  1. ZOMIG [Suspect]
     Indication: MIGRAINE
     Route: 048
  2. ZOMIG [Suspect]
     Indication: HEADACHE
     Route: 048

REACTIONS (4)
  - Suicidal ideation [Unknown]
  - Pain [Unknown]
  - Headache [Unknown]
  - Intentional drug misuse [Unknown]
